FAERS Safety Report 5098225-8 (Version None)
Quarter: 2006Q3

REPORT INFORMATION
  Report Type: 
  Country: None (occurrence: None)
  Receive Date: 20060906
  Receipt Date: 20060616
  Transmission Date: 20061208
  Serious: Yes (Other)
  Sender: FDA-Public Use
  Company Number: US-GLAXOSMITHKLINE-A0618756A

PATIENT
  Age: 88 Year
  Sex: Female

DRUGS (4)
  1. CITRUCEL SUGAR-FREE SUSPENSION ORANGE [Suspect]
     Indication: CONSTIPATION
     Route: 048
     Dates: start: 20060101, end: 20060101
  2. BENADRYL [Concomitant]
  3. LAXATIVE [Concomitant]
  4. AMARYL [Concomitant]

REACTIONS (4)
  - DRUG INEFFECTIVE [None]
  - HAEMATOCHEZIA [None]
  - PHARMACEUTICAL PRODUCT COMPLAINT [None]
  - RECTAL HAEMORRHAGE [None]
